FAERS Safety Report 24329067 (Version 3)
Quarter: 2024Q3

REPORT INFORMATION
  Report Type: Spontaneous
  Country: US (occurrence: US)
  Receive Date: 20240917
  Receipt Date: 20240930
  Transmission Date: 20241017
  Serious: No
  Sender: TRAVERE THERAPEUTICS
  Company Number: US-TRAVERE-2024TVT00847

PATIENT
  Age: 70 Year
  Sex: Male

DRUGS (2)
  1. FILSPARI [Suspect]
     Active Substance: SPARSENTAN
     Indication: IgA nephropathy
     Dosage: ONE TABLET BY MOUTH ONE TIME A DAY FOR DAYS 1-14 THEN 2 TABLETS BY MOUTH ONE TIME A DAY ON DAYS 15-
     Route: 048
     Dates: start: 202408
  2. HYDRALAZINE [Suspect]
     Active Substance: HYDRALAZINE HYDROCHLORIDE
     Indication: Product used for unknown indication

REACTIONS (9)
  - Nausea [Unknown]
  - Heart rate increased [Unknown]
  - Blood pressure systolic increased [Unknown]
  - Dizziness [Unknown]
  - Lethargy [Unknown]
  - Asthenia [Unknown]
  - Dyspnoea [Unknown]
  - Palpitations [Unknown]
  - Decreased appetite [Unknown]
